FAERS Safety Report 15517840 (Version 3)
Quarter: 2018Q4

REPORT INFORMATION
  Report Type: Spontaneous
  Country: CN (occurrence: CN)
  Receive Date: 20181017
  Receipt Date: 20181029
  Transmission Date: 20190205
  Serious: Yes (Hospitalization, Other)
  Sender: FDA-Public Use
  Company Number: CN-009507513-1810CHN004924

PATIENT
  Age: 60 Year
  Sex: Male

DRUGS (4)
  1. PEMBROLIZUMAB. [Suspect]
     Active Substance: PEMBROLIZUMAB
     Dosage: 200 MG, ONCE EVERY 3 WEEKS, FOR 3 CYCLES
     Route: 042
     Dates: start: 20161115, end: 20161115
  2. PEMBROLIZUMAB. [Suspect]
     Active Substance: PEMBROLIZUMAB
     Indication: OESOPHAGEAL SQUAMOUS CELL CARCINOMA
     Dosage: 200 MG, ONCE EVERY 3 WEEKS, FOR 3 CYCLES
     Route: 042
     Dates: start: 20160819, end: 20160909
  3. PEMBROLIZUMAB. [Suspect]
     Active Substance: PEMBROLIZUMAB
     Dosage: 200 MG, ONCE EVERY 3 WEEKS, FOR 3 CYCLES
     Route: 042
     Dates: start: 20160929, end: 20160929
  4. PEMBROLIZUMAB. [Suspect]
     Active Substance: PEMBROLIZUMAB
     Dosage: 200 MG, ONCE EVERY 3 WEEKS, FOR 3 CYCLES
     Route: 042
     Dates: start: 20161205, end: 20161226

REACTIONS (4)
  - Product use in unapproved indication [Unknown]
  - Interstitial lung disease [Recovering/Resolving]
  - Immune-mediated adverse reaction [Recovering/Resolving]
  - Inappropriate schedule of product administration [Unknown]

NARRATIVE: CASE EVENT DATE: 20160819
